FAERS Safety Report 20186074 (Version 1)
Quarter: 2021Q4

REPORT INFORMATION
  Report Type: Spontaneous
  Country: JP (occurrence: JP)
  Receive Date: 20211215
  Receipt Date: 20211215
  Transmission Date: 20220303
  Serious: Yes (Other)
  Sender: FDA-Public Use
  Company Number: JP-TEVA-2021-JP-006156J

PATIENT
  Sex: Female

DRUGS (1)
  1. FENOFIBRATE [Suspect]
     Active Substance: FENOFIBRATE
     Indication: Product used for unknown indication
     Route: 048

REACTIONS (3)
  - Angina pectoris [Unknown]
  - Cardiac fibrillation [Unknown]
  - Muscle spasms [Unknown]
